FAERS Safety Report 13759098 (Version 1)
Quarter: 2017Q3

REPORT INFORMATION
  Report Type: Spontaneous
  Country: ES (occurrence: ES)
  Receive Date: 20170717
  Receipt Date: 20170717
  Transmission Date: 20171127
  Serious: Yes (Hospitalization, Other)
  Sender: FDA-Public Use
  Company Number: ES-EDENBRIDGE PHARMACEUTICALS, LLC-ES-2017EDE000093

PATIENT
  Age: 3 Month
  Sex: Female

DRUGS (1)
  1. PREDNISOLONE SODIUM PHOSPHATE. [Suspect]
     Active Substance: PREDNISOLONE SODIUM PHOSPHATE
     Indication: PRODUCT USED FOR UNKNOWN INDICATION
     Dosage: 3 MG/KG, UNK

REACTIONS (3)
  - Hypertrophic cardiomyopathy [Recovered/Resolved]
  - Irritability [Recovered/Resolved]
  - Poor feeding infant [Recovered/Resolved]
